FAERS Safety Report 8833894 (Version 1)
Quarter: 2012Q4

REPORT INFORMATION
  Report Type: 
  Country: CA (occurrence: CA)
  Receive Date: 20121010
  Receipt Date: 20121010
  Transmission Date: 20130627
  Serious: Yes (Other)
  Sender: FDA-Public Use
  Company Number: CHPA2012CA021026

PATIENT
  Age: 44 Year
  Sex: Female

DRUGS (2)
  1. NEOCITRAN NIGHTTIME TOTAL SYMPTOM RELIEF [Suspect]
     Indication: NASOPHARYNGITIS
     Dosage: 1 cup, ONCE/SINGLE
     Route: 048
     Dates: start: 20120923, end: 20120923
  2. VITAMIN C [Concomitant]

REACTIONS (3)
  - Haemoptysis [Recovered/Resolved]
  - Cough [Recovered/Resolved]
  - Dry throat [Recovered/Resolved]
